FAERS Safety Report 14454602 (Version 1)
Quarter: 2018Q1

REPORT INFORMATION
  Report Type: Spontaneous
  Country: US (occurrence: US)
  Receive Date: 20180129
  Receipt Date: 20180129
  Transmission Date: 20180509
  Serious: No
  Sender: FDA-Public Use
  Company Number: US-MYLANLABS-2018M1004104

PATIENT
  Age: 92 Year
  Sex: Female

DRUGS (1)
  1. LIDOCAINE PATCH [Suspect]
     Active Substance: LIDOCAINE
     Indication: PAIN
     Dosage: UNK
     Route: 003
     Dates: start: 20180110

REACTIONS (3)
  - Product adhesion issue [Not Recovered/Not Resolved]
  - No adverse event [Unknown]
  - Drug ineffective [Not Recovered/Not Resolved]

NARRATIVE: CASE EVENT DATE: 201801
